FAERS Safety Report 5622196-6 (Version None)
Quarter: 2008Q1

REPORT INFORMATION
  Report Type: 
  Country: None (occurrence: None)
  Receive Date: 20080211
  Receipt Date: 20080201
  Transmission Date: 20080703
  Serious: Yes (Hospitalization, Other)
  Sender: FDA-Public Use
  Company Number: US-ASTRAZENECA-2008UW02312

PATIENT
  Age: 78 Year
  Sex: Female
  Weight: 61.7 kg

DRUGS (7)
  1. CRESTOR [Suspect]
  2. LISINOPRIL [Concomitant]
  3. INDAPAMIDE [Concomitant]
  4. NEXIUM [Concomitant]
  5. SINGULAIR [Concomitant]
  6. CLARINEX [Concomitant]
  7. ASPIRIN [Concomitant]
     Route: 048

REACTIONS (1)
  - BREAST CANCER [None]
